FAERS Safety Report 4454037-7 (Version None)
Quarter: 2004Q3

REPORT INFORMATION
  Report Type: 
  Country: None (occurrence: None)
  Receive Date: 20040920
  Receipt Date: 20040805
  Transmission Date: 20050211
  Serious: Yes (Life-Threatening, Hospitalization, Other)
  Sender: FDA-Public Use
  Company Number: JP-BRISTOL-MYERS SQUIBB COMPANY-12662565

PATIENT
  Age: 48 Year
  Sex: Male

DRUGS (3)
  1. ZERIT [Suspect]
     Indication: HIV INFECTION
     Route: 048
     Dates: start: 20020901, end: 20040601
  2. VIDEX EC [Suspect]
     Indication: HIV INFECTION
     Dosage: ONCE DAILY
     Route: 048
     Dates: start: 20020901, end: 20040601
  3. VIRACEPT [Suspect]
     Indication: HIV INFECTION
     Route: 048
     Dates: start: 20020901, end: 20040601

REACTIONS (4)
  - LACTIC ACIDOSIS [None]
  - NEUROPATHY PERIPHERAL [None]
  - PYREXIA [None]
  - RENAL DISORDER [None]
